FAERS Safety Report 8825533 (Version 2)
Quarter: 2012Q4

REPORT INFORMATION
  Report Type: 
  Country: US (occurrence: US)
  Receive Date: 20121004
  Receipt Date: 20121101
  Transmission Date: 20130627
  Serious: Yes (Other)
  Sender: FDA-Public Use
  Company Number: US-ELI_LILLY_AND_COMPANY-US201209007864

PATIENT
  Age: 67 Year
  Sex: Female

DRUGS (5)
  1. EVISTA [Suspect]
     Indication: OSTEOPOROSIS
     Dosage: 60 mg, qd
     Route: 065
     Dates: start: 2002
  2. MULTIVITAMIN [Concomitant]
     Dosage: UNK, qd
     Route: 065
  3. ASPIRIN [Concomitant]
     Dosage: 81 mg, qd
     Route: 065
  4. FISH OIL [Concomitant]
     Dosage: UNK, qd
     Route: 065
  5. GLUCOSAMINE [Concomitant]
     Dosage: UNK, qd
     Route: 065

REACTIONS (8)
  - Loss of consciousness [Recovered/Resolved]
  - Concussion [Recovered/Resolved]
  - Head injury [Recovered/Resolved]
  - Fall [Recovered/Resolved]
  - Joint injury [Recovered/Resolved]
  - Joint injury [Recovered/Resolved]
  - Haematoma [Recovered/Resolved]
  - Photopsia [Recovered/Resolved]
